FAERS Safety Report 5512889-3 (Version None)
Quarter: 2007Q4

REPORT INFORMATION
  Report Type: 
  Country: None (occurrence: None)
  Receive Date: 20071112
  Receipt Date: 20071102
  Transmission Date: 20080405
  Serious: Yes (Hospitalization)
  Sender: FDA-Public Use
  Company Number: A0691486A

PATIENT
  Sex: Female
  Weight: 80 kg

DRUGS (1)
  1. LAPATINIB [Suspect]
     Indication: METASTASES TO CENTRAL NERVOUS SYSTEM
     Dosage: 750MG TWICE PER DAY
     Route: 048
     Dates: start: 20061028

REACTIONS (1)
  - FALL [None]
